FAERS Safety Report 8240433-9 (Version None)
Quarter: 2012Q1

REPORT INFORMATION
  Report Type: 
  Country: None (occurrence: None)
  Receive Date: 20120328
  Receipt Date: 20120316
  Transmission Date: 20120608
  Serious: Yes (Death, Hospitalization)
  Sender: FDA-Public Use
  Company Number: US-ROCHE-789685

PATIENT
  Sex: Male

DRUGS (14)
  1. SPIRONOLACTONE [Concomitant]
  2. PEGINTERFERON ALFA-2A [Suspect]
     Indication: HEPATITIS C
     Dosage: DOSE REPORTED AS: 180 MICROGRAM 1 DAY, LAST DOSE: 11 APR 2011
     Route: 058
     Dates: start: 20100920, end: 20110411
  3. PROPRANOLOL [Concomitant]
  4. DILAUDID [Concomitant]
     Dates: start: 20101208, end: 20101208
  5. BENZONATATE [Concomitant]
  6. RANITIDINE [Concomitant]
  7. BLINDED DACLATASVIR [Suspect]
     Indication: HEPATITIS C
     Dosage: LAST DOSE: 04 MAR 2011
     Route: 048
     Dates: start: 20100910, end: 20110304
  8. LANSOPRAZOLE [Concomitant]
     Dates: start: 20100301, end: 20100824
  9. MEGAVITAMINS [Concomitant]
  10. COPEGUS [Suspect]
     Indication: HEPATITIS C
     Dosage: LAST DOSE: 11 APR 2011
     Route: 048
     Dates: start: 20100920, end: 20110411
  11. VICODIN [Concomitant]
     Dates: start: 20101208, end: 20101208
  12. URSO 250 [Concomitant]
  13. CLINDAMYCIN [Concomitant]
     Dates: start: 20101208, end: 20110103
  14. TYLENOL [Concomitant]

REACTIONS (4)
  - HEPATIC FAILURE [None]
  - SEPSIS [None]
  - SHOCK HAEMORRHAGIC [None]
  - RENAL FAILURE [None]
